FAERS Safety Report 25704369 (Version 1)
Quarter: 2025Q3

REPORT INFORMATION
  Report Type: Report from Study
  Country: US (occurrence: US)
  Receive Date: 20250820
  Receipt Date: 20250820
  Transmission Date: 20251021
  Serious: Yes (Hospitalization)
  Sender: ABBVIE
  Company Number: US-ABBVIE-6299899

PATIENT
  Sex: Male

DRUGS (2)
  1. HUMIRA [Suspect]
     Active Substance: ADALIMUMAB
     Indication: Psoriasis
     Route: 058
     Dates: start: 20190409
  2. HUMIRA [Suspect]
     Active Substance: ADALIMUMAB
     Route: 058
     Dates: start: 20170713

REACTIONS (5)
  - Hepatic cirrhosis [Recovering/Resolving]
  - Atrial fibrillation [Recovering/Resolving]
  - Obstruction [Recovering/Resolving]
  - Arrhythmia [Recovering/Resolving]
  - Dizziness [Recovering/Resolving]
